FAERS Safety Report 8574828-0 (Version None)
Quarter: 2012Q3

REPORT INFORMATION
  Report Type: 
  Country: None (occurrence: None)
  Receive Date: 20120807
  Receipt Date: 20120719
  Transmission Date: 20120928
  Serious: No
  Sender: FDA-Public Use
  Company Number: US-009507513-1207USA008499

PATIENT

DRUGS (3)
  1. VICTRELIS [Suspect]
     Dosage: 4 UNK, TID
     Dates: start: 20120424
  2. RIBASPHERE [Concomitant]
  3. PEG-INTRON [Suspect]
     Dosage: 150 MICROGRAM, QW
     Route: 058
     Dates: start: 20120508

REACTIONS (6)
  - ANAEMIA [None]
  - WEIGHT DECREASED [None]
  - INJECTION SITE ERYTHEMA [None]
  - FATIGUE [None]
  - WHITE BLOOD CELL COUNT DECREASED [None]
  - DIZZINESS [None]
